FAERS Safety Report 9036221 (Version 1)
Quarter: 2013Q1

REPORT INFORMATION
  Report Type: Spontaneous
  Country: GR (occurrence: None)
  Receive Date: 20130114
  Receipt Date: 20130114
  Transmission Date: 20140127
  Serious: Yes (Life-Threatening, Hospitalization, Other)
  Sender: FDA-Public Use
  Company Number: 2013P1000050

PATIENT
  Age: 75 Year
  Sex: Female

DRUGS (5)
  1. HEPARIN [Suspect]
     Indication: CARDIAC VALVE DISEASE
  2. BEMIPARIN [Concomitant]
  3. WARFARIN [Concomitant]
  4. METOPROLOL [Concomitant]
  5. AMLODIPINE [Concomitant]

REACTIONS (4)
  - Acute myocardial infarction [None]
  - Cardiogenic shock [None]
  - Coronary artery thrombosis [None]
  - Heparin-induced thrombocytopenia [None]
